FAERS Safety Report 21521539 (Version 1)
Quarter: 2022Q4

REPORT INFORMATION
  Report Type: Spontaneous
  Country: US (occurrence: US)
  Receive Date: 20221028
  Receipt Date: 20221028
  Transmission Date: 20230112
  Serious: No
  Sender: FDA-Public Use
  Company Number: US-SA-SAC20221020001866

PATIENT
  Age: 8 Year
  Sex: Male

DRUGS (1)
  1. DUPIXENT [Suspect]
     Active Substance: DUPILUMAB
     Indication: Dermatitis atopic
     Dosage: INJECT 2 SYRINGES UNDER THE SKIN ON DAY 1, THEN 1. SYRINGE ON DAY 29, THEN 1 SYRINGE EVERY 4 WEEKS T
     Route: 058
     Dates: start: 20220927

REACTIONS (2)
  - Vision blurred [Unknown]
  - Dry eye [Unknown]
